FAERS Safety Report 6681131-2 (Version None)
Quarter: 2010Q2

REPORT INFORMATION
  Report Type: 
  Country: None (occurrence: None)
  Receive Date: 20100413
  Receipt Date: 20100413
  Transmission Date: 20101027
  Serious: Yes (Hospitalization)
  Sender: FDA-Public Use
  Company Number: None

PATIENT
  Age: 62 Year
  Sex: Male
  Weight: 65.8 kg

DRUGS (2)
  1. PRASUGREL [Suspect]
     Indication: CORONARY ARTERIAL STENT INSERTION
     Dosage: 10 MG EVERY DAY PO
     Route: 048
     Dates: start: 20100204
  2. ASPIRIN [Suspect]
     Indication: CEREBROVASCULAR ACCIDENT PROPHYLAXIS

REACTIONS (9)
  - BENIGN PROSTATIC HYPERPLASIA [None]
  - BUNDLE BRANCH BLOCK RIGHT [None]
  - ELECTROCARDIOGRAM ST SEGMENT ELEVATION [None]
  - ELECTROCARDIOGRAM T WAVE ABNORMAL [None]
  - HAEMATURIA [None]
  - HAEMORRHAGE [None]
  - HYPOTENSION [None]
  - SINUS BRADYCARDIA [None]
  - THROMBOSIS IN DEVICE [None]
